FAERS Safety Report 10272014 (Version 1)
Quarter: 2014Q3

REPORT INFORMATION
  Report Type: Spontaneous
  Country: LB (occurrence: LB)
  Receive Date: 20140702
  Receipt Date: 20140702
  Transmission Date: 20150326
  Serious: Yes (Death, Hospitalization)
  Sender: FDA-Public Use
  Company Number: PHHY2014LB079965

PATIENT
  Sex: Male
  Weight: 63 kg

DRUGS (2)
  1. EXJADE [Suspect]
     Active Substance: DEFERASIROX
     Indication: SICKLE CELL ANAEMIA
     Dosage: 2250 MG, QD
     Route: 048
     Dates: start: 20090827, end: 20140527
  2. HYDREA [Concomitant]
     Active Substance: HYDROXYUREA
     Dosage: UNK UKN, UNK

REACTIONS (2)
  - Multi-organ failure [Fatal]
  - Renal failure [Fatal]

NARRATIVE: CASE EVENT DATE: 20140505
